FAERS Safety Report 23457597 (Version 1)
Quarter: 2024Q1

REPORT INFORMATION
  Report Type: Spontaneous
  Country: GB (occurrence: GB)
  Receive Date: 20240130
  Receipt Date: 20240130
  Transmission Date: 20240410
  Serious: Yes (Hospitalization)
  Sender: FDA-Public Use
  Company Number: None

PATIENT
  Age: 72 Year
  Sex: Female
  Weight: 83 kg

DRUGS (9)
  1. RAMIPRIL [Suspect]
     Active Substance: RAMIPRIL
     Indication: Myocardial infarction
     Dosage: 1.25MG PREVIOUSLY;
     Route: 065
     Dates: start: 20200214, end: 20231026
  2. BISOPROLOL [Concomitant]
     Active Substance: BISOPROLOL\BISOPROLOL FUMARATE
     Indication: Myocardial infarction
     Dates: start: 20200215
  3. BETAHISTINE [Concomitant]
     Active Substance: BETAHISTINE
     Indication: Meniere^s disease
     Dates: start: 1990
  4. ATORVASTATIN [Concomitant]
     Active Substance: ATORVASTATIN
     Indication: Myocardial infarction
     Dates: start: 20200215
  5. LEVOTHYROXINE [Concomitant]
     Active Substance: LEVOTHYROXINE\LEVOTHYROXINE SODIUM
     Indication: Hypothyroidism
     Dates: start: 2009
  6. LANSOPRAZOLE [Concomitant]
     Active Substance: LANSOPRAZOLE
     Indication: Reflux gastritis
     Dates: start: 2019
  7. FUROSEMIDE [Concomitant]
     Active Substance: FUROSEMIDE
     Dates: start: 20230915, end: 20240109
  8. ASPIRIN [Concomitant]
     Active Substance: ASPIRIN
     Indication: Myocardial infarction
     Dates: start: 20200215
  9. ISOSORBIDE [Concomitant]
     Active Substance: ISOSORBIDE
     Indication: Myocardial infarction
     Dates: start: 20230915

REACTIONS (7)
  - Cough [Recovered/Resolved]
  - Cardiac failure congestive [Recovered/Resolved]
  - Hypertension [Recovered/Resolved]
  - Angina unstable [Recovered/Resolved]
  - Dyspnoea [Recovered/Resolved]
  - Throat tightness [Recovered/Resolved]
  - Swollen tongue [Recovered/Resolved]

NARRATIVE: CASE EVENT DATE: 20200214
